FAERS Safety Report 9358692 (Version 2)
Quarter: 2013Q3

REPORT INFORMATION
  Report Type: Spontaneous
  Country: US (occurrence: US)
  Receive Date: 20130620
  Receipt Date: 20130726
  Transmission Date: 20140515
  Serious: Yes (Other)
  Sender: FDA-Public Use
  Company Number: US-JNJFOC-20130610360

PATIENT
  Age: 80 Year
  Sex: Female
  Weight: 74.39 kg

DRUGS (12)
  1. REMICADE [Suspect]
     Indication: RHEUMATOID ARTHRITIS
     Route: 042
     Dates: start: 20030624, end: 201208
  2. REMICADE [Suspect]
     Indication: RHEUMATOID ARTHRITIS
     Route: 042
     Dates: start: 201208, end: 20130423
  3. METHOTREXATE [Concomitant]
     Indication: RHEUMATOID ARTHRITIS
     Route: 048
     Dates: start: 2003, end: 20130423
  4. ALFUZOSIN [Concomitant]
  5. PREDNISONE [Concomitant]
  6. PRESERVISION [Concomitant]
  7. CELEBREX [Concomitant]
  8. ASPIRIN [Concomitant]
  9. FOLIC ACID [Concomitant]
  10. ACIPHEX [Concomitant]
  11. ENALAPRIL [Concomitant]
  12. AMOXICILLIN [Concomitant]
     Indication: DENTAL CARE

REACTIONS (1)
  - Squamous cell carcinoma of skin [Not Recovered/Not Resolved]
